FAERS Safety Report 7745966-7 (Version None)
Quarter: 2011Q3

REPORT INFORMATION
  Report Type: 
  Country: None (occurrence: None)
  Receive Date: 20110913
  Receipt Date: 20110901
  Transmission Date: 20111222
  Serious: Yes (Life-Threatening, Hospitalization)
  Sender: FDA-Public Use
  Company Number: IT-NOVOPROD-334487

PATIENT

DRUGS (6)
  1. NOVORAPID FLEXPEN [Suspect]
     Indication: TYPE 2 DIABETES MELLITUS
     Dosage: 18 U, QD
     Route: 058
     Dates: start: 20090101
  2. LANTUS [Suspect]
     Indication: TYPE 2 DIABETES MELLITUS
     Dosage: 18 (UNIT UNSPECIFIED)
     Route: 058
     Dates: start: 20090101
  3. CONGESCOR [Concomitant]
     Dosage: 3.75 MG, QD, OS
  4. TRIATEC HCT [Concomitant]
     Dosage: 10 MG/50MG/OS
  5. ASPIRIN [Concomitant]
     Dosage: 100 MG, QD, OS
  6. ATORVASTATIN CALCIUM [Concomitant]
     Dosage: 10 MG, QD, OS

REACTIONS (2)
  - BLOOD CREATININE INCREASED [None]
  - HYPOGLYCAEMIA [None]
